FAERS Safety Report 7962666-9 (Version None)
Quarter: 2011Q4

REPORT INFORMATION
  Report Type: 
  Country: None (occurrence: None)
  Receive Date: 20111207
  Receipt Date: 20111130
  Transmission Date: 20120403
  Serious: Yes (Hospitalization)
  Sender: FDA-Public Use
  Company Number: NL-BAXTER-2011BH033396

PATIENT
  Age: 18 Year
  Sex: Female

DRUGS (6)
  1. VITAMIN TAB [Concomitant]
     Indication: PRODUCT USED FOR UNKNOWN INDICATION
     Route: 065
  2. URSODIOL [Concomitant]
     Indication: PRODUCT USED FOR UNKNOWN INDICATION
     Route: 065
  3. GAMMAGARD LIQUID [Suspect]
     Dosage: X PER 35 DAGEN
     Route: 042
     Dates: start: 20110916, end: 20110916
  4. GAMMAGARD LIQUID [Suspect]
     Indication: IMMUNE SYSTEM DISORDER
     Dosage: X PER 35 DAGEN
     Route: 042
     Dates: start: 20100728, end: 20110812
  5. ANTIBIOTICS [Concomitant]
     Indication: PRODUCT USED FOR UNKNOWN INDICATION
     Route: 065
  6. GAMMAGARD LIQUID [Suspect]
     Dosage: X PER 35 DAGEN
     Route: 042
     Dates: start: 20110916, end: 20110916

REACTIONS (2)
  - RESPIRATORY TRACT INFECTION [None]
  - WEIGHT DECREASED [None]
